FAERS Safety Report 21450994 (Version 1)
Quarter: 2022Q4

REPORT INFORMATION
  Report Type: Report from Study
  Country: CA (occurrence: CA)
  Receive Date: 20221013
  Receipt Date: 20221013
  Transmission Date: 20230113
  Serious: Yes (Death, Hospitalization, Other)
  Sender: FDA-Public Use
  Company Number: CA-BRISTOL-MYERS SQUIBB COMPANY-2022-106993

PATIENT
  Age: 80 Year
  Sex: Female
  Weight: 61.00 kg

DRUGS (9)
  1. ORENCIA [Suspect]
     Active Substance: ABATACEPT
     Indication: Rheumatoid arthritis
     Route: 058
     Dates: start: 20220811, end: 2022
  2. PREDNISONE [Concomitant]
     Active Substance: PREDNISONE
     Indication: Product used for unknown indication
     Route: 065
  3. LEUCOVORIN [Concomitant]
     Active Substance: LEUCOVORIN
     Indication: Product used for unknown indication
     Route: 065
  4. INDAPAMIDE [Concomitant]
     Active Substance: INDAPAMIDE
     Indication: Product used for unknown indication
     Route: 065
  5. CHOLECALCIFEROL [Concomitant]
     Active Substance: CHOLECALCIFEROL
     Indication: Product used for unknown indication
     Route: 065
  6. VITAMIN B12 [Concomitant]
     Active Substance: CYANOCOBALAMIN
     Indication: Product used for unknown indication
     Route: 065
  7. QUINAPRIL [Concomitant]
     Active Substance: QUINAPRIL
     Indication: Product used for unknown indication
     Route: 065
  8. PREGABALIN [Concomitant]
     Active Substance: PREGABALIN
     Indication: Product used for unknown indication
     Route: 065
  9. ALENDRONATE [Concomitant]
     Active Substance: ALENDRONATE SODIUM
     Indication: Product used for unknown indication
     Route: 065

REACTIONS (2)
  - Death [Fatal]
  - Hospitalisation [Unknown]

NARRATIVE: CASE EVENT DATE: 20220101
